FAERS Safety Report 19048092 (Version 1)
Quarter: 2021Q1

REPORT INFORMATION
  Report Type: Spontaneous
  Country: NL (occurrence: NL)
  Receive Date: 20210323
  Receipt Date: 20210323
  Transmission Date: 20210420
  Serious: Yes (Life-Threatening, Hospitalization, Other)
  Sender: FDA-Public Use
  Company Number: NVSC2021NL063870

PATIENT
  Age: 59 Year
  Sex: Male

DRUGS (13)
  1. PREDNISONE. [Suspect]
     Active Substance: PREDNISONE
     Indication: SPLENOMEGALY
     Dosage: 1 MG/KG, QD
     Route: 048
     Dates: start: 2017
  2. PREDNISONE. [Suspect]
     Active Substance: PREDNISONE
     Indication: LYMPHADENOPATHY
     Dosage: 40 MG, QD, GRADUALLY TAPERED TO 40 MG DAILY
     Route: 065
     Dates: start: 2019, end: 2019
  3. PREDNISONE. [Suspect]
     Active Substance: PREDNISONE
     Indication: SKIN TOXICITY
  4. IDELALISIB [Suspect]
     Active Substance: IDELALISIB
     Indication: AUTOIMMUNE HAEMOLYTIC ANAEMIA
     Dosage: 150 MG, BID
     Route: 048
     Dates: start: 2017, end: 2017
  5. PREDNISONE. [Suspect]
     Active Substance: PREDNISONE
     Indication: B-CELL LYMPHOMA
  6. PREDNISONE. [Suspect]
     Active Substance: PREDNISONE
     Indication: AUTOIMMUNE HAEMOLYTIC ANAEMIA
     Dosage: UNK, CYCLIC, THREE CYCLES
     Route: 065
     Dates: start: 2017
  7. PREDNISONE. [Suspect]
     Active Substance: PREDNISONE
     Indication: LYMPHOMA
     Dosage: 90 MG, QD
     Route: 065
     Dates: start: 201903, end: 2019
  8. VALACICLOVIR [Concomitant]
     Active Substance: VALACYCLOVIR HYDROCHLORIDE
     Indication: PROPHYLAXIS
     Dosage: 500 MG, Q12H, (BID)
     Route: 048
     Dates: start: 2017
  9. TRIMETHOPRIM SULFAMETHOXAZOLE [Concomitant]
     Active Substance: SULFAMETHOXAZOLE\TRIMETHOPRIM
     Indication: PROPHYLAXIS
     Dosage: 480 MG, QD
     Route: 048
     Dates: start: 2017
  10. IDELALISIB [Suspect]
     Active Substance: IDELALISIB
     Dosage: 150 MG, Q12H (BID)
     Route: 065
     Dates: start: 201903, end: 2019
  11. IMMUNOGLOBULIN I.V [Concomitant]
     Active Substance: HUMAN IMMUNOGLOBULIN G
     Indication: AUTOIMMUNE HAEMOLYTIC ANAEMIA
     Dosage: 300 MG/M2
     Route: 042
     Dates: start: 2017
  12. CEFTRIAXONE. [Concomitant]
     Active Substance: CEFTRIAXONE
     Indication: SEPSIS
     Dosage: UNK
     Route: 065
     Dates: start: 201907
  13. PREDNISONE. [Suspect]
     Active Substance: PREDNISONE
     Indication: BONE MARROW INFILTRATION
     Dosage: 40 MG/M2, CYCLIC,  DAY 1?5; EIGHT CYCLES
     Route: 048
     Dates: start: 2008

REACTIONS (11)
  - Cryptococcosis [Recovered/Resolved]
  - Disseminated cryptococcosis [Recovered/Resolved]
  - Neurocryptococcosis [Recovered/Resolved]
  - Enterococcal infection [Recovered/Resolved]
  - Fatigue [Recovered/Resolved]
  - Pneumonia cryptococcal [Recovered/Resolved]
  - Malaise [Recovered/Resolved]
  - Pyrexia [Recovered/Resolved]
  - Fungaemia [Recovered/Resolved]
  - Lymphopenia [Recovering/Resolving]
  - Sepsis [Recovered/Resolved]

NARRATIVE: CASE EVENT DATE: 201907
